FAERS Safety Report 6914530-1 (Version None)
Quarter: 2010Q3

REPORT INFORMATION
  Report Type: 
  Country: None (occurrence: None)
  Receive Date: 20100805
  Receipt Date: 20100805
  Transmission Date: 20110219
  Serious: Yes (Life-Threatening)
  Sender: FDA-Public Use
  Company Number: None

PATIENT
  Sex: Male
  Weight: 97.5234 kg

DRUGS (1)
  1. BACTRIM DS [Suspect]
     Indication: PILONIDAL CYST
     Dosage: 1 TABLET 2 X DAILY PO
     Route: 048
     Dates: start: 20100725, end: 20100802

REACTIONS (1)
  - STEVENS-JOHNSON SYNDROME [None]
